FAERS Safety Report 6870796-8 (Version None)
Quarter: 2010Q3

REPORT INFORMATION
  Report Type: 
  Country: None (occurrence: None)
  Receive Date: 20100723
  Receipt Date: 20100713
  Transmission Date: 20110219
  Serious: Yes (Hospitalization)
  Sender: FDA-Public Use
  Company Number: CZ-ABBOTT-10P-217-0656983-00

PATIENT
  Sex: Female
  Weight: 73 kg

DRUGS (4)
  1. KLACID [Suspect]
     Indication: BRONCHOPNEUMONIA
     Route: 048
     Dates: start: 20090303, end: 20090310
  2. IBALGIN [Concomitant]
     Indication: RHEUMATOID ARTHRITIS
     Route: 048
  3. PARALEN [Concomitant]
     Indication: BODY TEMPERATURE INCREASED
     Dosage: QID
     Route: 048
     Dates: start: 20090302, end: 20090309
  4. MUCOSOLVAN [Concomitant]
     Indication: COUGH
     Route: 048
     Dates: start: 20090302, end: 20090309

REACTIONS (3)
  - DEHYDRATION [None]
  - VERTIGO [None]
  - VOMITING [None]
